FAERS Safety Report 10185150 (Version 1)
Quarter: 2014Q2

REPORT INFORMATION
  Report Type: Spontaneous
  Country: AU (occurrence: AU)
  Receive Date: 20140521
  Receipt Date: 20140521
  Transmission Date: 20141212
  Serious: Yes (Disabling)
  Sender: FDA-Public Use
  Company Number: AU-ROCHE-1404218

PATIENT
  Sex: Female

DRUGS (2)
  1. VALIUM [Suspect]
     Indication: BACK INJURY
     Route: 065
     Dates: start: 2004
  2. CELEBREX [Concomitant]
     Indication: BACK INJURY

REACTIONS (4)
  - Agoraphobia [Unknown]
  - Stupor [Unknown]
  - Panic attack [Unknown]
  - Drug dependence [Unknown]
